FAERS Safety Report 17783805 (Version 1)
Quarter: 2020Q2

REPORT INFORMATION
  Report Type: Spontaneous
  Country: US (occurrence: US)
  Receive Date: 20200514
  Receipt Date: 20200514
  Transmission Date: 20200714
  Serious: Yes (Hospitalization)
  Sender: FDA-Public Use
  Company Number: US-PFIZER INC-2020192670

PATIENT
  Age: 44 Year
  Sex: Female

DRUGS (1)
  1. IBRANCE [Suspect]
     Active Substance: PALBOCICLIB
     Dosage: 125 MG
     Dates: start: 20200506

REACTIONS (5)
  - Nausea [Unknown]
  - Vomiting [Unknown]
  - Pleural effusion [Unknown]
  - Nasal discomfort [Unknown]
  - Diarrhoea [Unknown]
